FAERS Safety Report 6181301-6 (Version None)
Quarter: 2009Q2

REPORT INFORMATION
  Report Type: 
  Country: None (occurrence: None)
  Receive Date: 20090506
  Receipt Date: 20090504
  Transmission Date: 20091009
  Serious: Yes (Death)
  Sender: FDA-Public Use
  Company Number: US-BRISTOL-MYERS SQUIBB COMPANY-13436019

PATIENT
  Age: 75 Year
  Sex: Female

DRUGS (19)
  1. CARBOPLATIN [Suspect]
     Indication: NON-SMALL CELL LUNG CANCER
     Route: 042
     Dates: start: 20060605, end: 20060605
  2. PACLITAXEL [Suspect]
     Indication: NON-SMALL CELL LUNG CANCER
     Route: 042
     Dates: start: 20060605, end: 20060605
  3. PLACEBO [Suspect]
     Indication: NON-SMALL CELL LUNG CANCER
     Route: 048
     Dates: start: 20060606, end: 20060623
  4. SYNTHROID [Concomitant]
  5. ESTRADIOL [Concomitant]
  6. NIFEDIPINE [Concomitant]
  7. HYDROCHLOROTHIAZIDE [Concomitant]
  8. ZOLOFT [Concomitant]
  9. COMPAZINE [Concomitant]
  10. LORAZEPAM [Concomitant]
  11. TUSSIONEX [Concomitant]
  12. TESSALON [Concomitant]
  13. ACTONEL [Concomitant]
  14. OMEPRAZOLE [Concomitant]
  15. ALOXI [Concomitant]
     Indication: ANTIEMETIC SUPPORTIVE CARE
     Dates: start: 20060605, end: 20060605
  16. BENADRYL [Concomitant]
     Indication: PROPHYLAXIS
     Dates: start: 20060605, end: 20060605
  17. DEXAMETHASONE 4MG TAB [Concomitant]
     Indication: PROPHYLAXIS
     Route: 042
     Dates: start: 20060605, end: 20060605
  18. ZANTAC [Concomitant]
     Indication: PROPHYLAXIS
     Dates: start: 20060605, end: 20060605
  19. TARCEVA [Concomitant]
     Indication: LUNG NEOPLASM MALIGNANT
     Route: 048
     Dates: start: 20060627, end: 20060629

REACTIONS (1)
  - MALIGNANT NEOPLASM PROGRESSION [None]
